FAERS Safety Report 5162597-6 (Version None)
Quarter: 2006Q4

REPORT INFORMATION
  Report Type: 
  Country: None (occurrence: None)
  Receive Date: 20061121
  Receipt Date: 20061118
  Transmission Date: 20070319
  Serious: Yes (Death, Hospitalization)
  Sender: FDA-Public Use
  Company Number: 163-21880-06110133

PATIENT
  Age: 68 Year
  Sex: Female

DRUGS (7)
  1. REVLIMID                     (LENALIDOMIDE) [Suspect]
     Indication: MULTIPLE MYELOMA
     Dosage: 10 MG, 1 IN 1 D, ORAL
     Route: 048
     Dates: start: 20061012, end: 20060101
  2. TOPROX XL (METOPROLOL SUCCINATE) [Concomitant]
  3. DEXAMETHASONE TAB [Concomitant]
  4. DETROL [Concomitant]
  5. FORADIL AEROLIZER (FORMOTEROL FUMARATE) [Concomitant]
  6. NEXIUM [Concomitant]
  7. TOPROL-XL [Concomitant]

REACTIONS (5)
  - ACCIDENTAL OVERDOSE [None]
  - DEMENTIA [None]
  - INCORRECT DOSE ADMINISTERED [None]
  - PNEUMONIA SALMONELLA [None]
  - STAPHYLOCOCCAL INFECTION [None]
